FAERS Safety Report 18871545 (Version 1)
Quarter: 2021Q1

REPORT INFORMATION
  Report Type: Report from Study
  Country: GB (occurrence: GB)
  Receive Date: 20210210
  Receipt Date: 20210210
  Transmission Date: 20210420
  Serious: Yes (Other)
  Sender: FDA-Public Use
  Company Number: NVSC2021GB027040

PATIENT
  Sex: Male

DRUGS (1)
  1. ERELZI [Suspect]
     Active Substance: ETANERCEPT-SZZS
     Indication: ANKYLOSING SPONDYLITIS
     Dosage: 50 MG, QW
     Route: 065

REACTIONS (6)
  - Diabetes mellitus [Unknown]
  - Memory impairment [Unknown]
  - Psychiatric symptom [Unknown]
  - Pain in extremity [Unknown]
  - Pain [Unknown]
  - Mental disorder [Unknown]
